FAERS Safety Report 7391276-X (Version None)
Quarter: 2011Q2

REPORT INFORMATION
  Report Type: 
  Country: None (occurrence: None)
  Receive Date: 20110404
  Receipt Date: 20110324
  Transmission Date: 20111010
  Serious: Yes (Hospitalization, Other)
  Sender: FDA-Public Use
  Company Number: JP-ASTELLAS-2011JP001725

PATIENT
  Sex: Female
  Weight: 56.8 kg

DRUGS (10)
  1. MINOCYCLINE [Concomitant]
     Route: 065
  2. ITRIZOLE [Concomitant]
     Dosage: 100 MG, UID/QD
     Route: 048
     Dates: start: 20090729, end: 20100610
  3. LEVOFLOXACIN [Concomitant]
     Route: 065
  4. DORIPENEM [Concomitant]
     Route: 065
  5. PREDONINE [Concomitant]
     Indication: PROPHYLAXIS AGAINST TRANSPLANT REJECTION
     Dosage: 45 MG, UNKNOWN/D
     Route: 048
     Dates: start: 20090729, end: 20100612
  6. MEROPENEM [Concomitant]
     Route: 065
  7. CLARITHROMYCIN [Concomitant]
     Route: 065
  8. TAKEPRON [Concomitant]
     Indication: REFLUX OESOPHAGITIS
     Dosage: 15 MG, BID
     Route: 048
     Dates: start: 20081106, end: 20100610
  9. PROGRAF [Suspect]
     Indication: PROPHYLAXIS AGAINST TRANSPLANT REJECTION
     Dosage: 1 MG, BID
     Route: 048
     Dates: start: 20090701, end: 20100610
  10. METHOTREXATE [Concomitant]
     Indication: PROPHYLAXIS AGAINST TRANSPLANT REJECTION
     Route: 065

REACTIONS (4)
  - ACUTE GRAFT VERSUS HOST DISEASE IN SKIN [None]
  - EOSINOPHILIC PNEUMONIA [None]
  - DRUG INEFFECTIVE [None]
  - HERPES ZOSTER [None]
